FAERS Safety Report 20075280 (Version 1)
Quarter: 2021Q4

REPORT INFORMATION
  Report Type: Spontaneous
  Country: IN (occurrence: IN)
  Receive Date: 20211116
  Receipt Date: 20211116
  Transmission Date: 20220303
  Serious: Yes (Hospitalization)
  Sender: FDA-Public Use
  Company Number: IN-MYLANLABS-2021M1084387

PATIENT
  Age: 7 Year
  Sex: Male

DRUGS (5)
  1. LORAZEPAM [Suspect]
     Active Substance: LORAZEPAM
     Indication: Status epilepticus
     Dosage: UNK
     Route: 065
  2. LEVETIRACETAM [Concomitant]
     Active Substance: LEVETIRACETAM
     Indication: Status epilepticus
     Dosage: UNK
     Route: 065
  3. PHENYTOIN [Concomitant]
     Active Substance: PHENYTOIN
     Indication: Status epilepticus
     Dosage: UNK
     Route: 065
  4. CLOBAZAM [Concomitant]
     Active Substance: CLOBAZAM
     Indication: Status epilepticus
     Dosage: UNK
     Route: 065
  5. OXCARBAZEPINE [Concomitant]
     Active Substance: OXCARBAZEPINE
     Indication: Status epilepticus
     Dosage: UNK
     Route: 065

REACTIONS (1)
  - Drug ineffective [Unknown]
